FAERS Safety Report 17913429 (Version 1)
Quarter: 2020Q2

REPORT INFORMATION
  Report Type: Spontaneous
  Country: US (occurrence: US)
  Receive Date: 20200618
  Receipt Date: 20200618
  Transmission Date: 20200714
  Serious: No
  Sender: FDA-Public Use
  Company Number: US-THERAPEUTICSMD-2020TMD02408

PATIENT
  Sex: Female

DRUGS (2)
  1. IMVEXXY [Suspect]
     Active Substance: ESTRADIOL
     Indication: DYSPAREUNIA
     Dosage: UNK
  2. GNC WOMEN^S ULTRA MEGA MULTIVITAMIN [Suspect]
     Active Substance: DIETARY SUPPLEMENT
     Dosage: UNK

REACTIONS (2)
  - Nausea [Unknown]
  - Breast tenderness [Unknown]
